FAERS Safety Report 5766794-8 (Version None)
Quarter: 2008Q2

REPORT INFORMATION
  Report Type: 
  Country: None (occurrence: None)
  Receive Date: 20080610
  Receipt Date: 20080610
  Transmission Date: 20081010
  Serious: Yes (Other)
  Sender: FDA-Public Use
  Company Number: None

PATIENT
  Age: 27 Year
  Sex: Female
  Weight: 68.0396 kg

DRUGS (3)
  1. ORTHO TRI-CYCLEN LO [Suspect]
     Indication: CONTRACEPTION
     Dosage: 1 PILL A DAY ONCE A DAY PO
     Route: 048
     Dates: start: 20020101, end: 20080608
  2. ORTHO TRI-CYCLEN LO [Suspect]
     Indication: PROPHYLAXIS
     Dosage: 1 PILL A DAY ONCE A DAY PO
     Route: 048
     Dates: start: 20020101, end: 20080608
  3. ORTHO TRI-CYCLEN LO [Suspect]
     Indication: UTERINE LEIOMYOMA
     Dosage: 1 PILL A DAY ONCE A DAY PO
     Route: 048
     Dates: start: 20020101, end: 20080608

REACTIONS (3)
  - ABDOMINAL PAIN [None]
  - NAUSEA [None]
  - WEIGHT INCREASED [None]
